FAERS Safety Report 4918825-2 (Version None)
Quarter: 2006Q1

REPORT INFORMATION
  Report Type: 
  Country: None (occurrence: None)
  Receive Date: 20060222
  Receipt Date: 20050309
  Transmission Date: 20060701
  Serious: Yes (Hospitalization)
  Sender: FDA-Public Use
  Company Number: US-MERCK-0503USA01959

PATIENT
  Age: 89 Year
  Sex: Female
  Weight: 64 kg

DRUGS (11)
  1. VIOXX [Suspect]
     Indication: OSTEOARTHRITIS
     Route: 048
     Dates: start: 20000101, end: 20040816
  2. FOSAMAX [Concomitant]
     Route: 048
  3. ISOSORBIDE MONONITRATE [Concomitant]
     Route: 065
     Dates: start: 20030101
  4. CLONIDINE [Concomitant]
     Route: 065
     Dates: start: 20010101, end: 20040101
  5. HYDRODIURIL [Concomitant]
     Route: 065
  6. ZOCOR [Concomitant]
     Route: 048
     Dates: start: 20010101
  7. ASPIRIN [Concomitant]
     Route: 065
     Dates: start: 20030101
  8. ZESTRIL [Concomitant]
     Indication: HYPERTENSION
     Route: 065
     Dates: start: 20030101, end: 20040101
  9. TYLENOL (CAPLET) [Concomitant]
     Route: 065
  10. VIACTIV SOFT CALCIUM CHEWS [Concomitant]
     Route: 065
  11. OSTEO-BI-FLEX [Concomitant]
     Route: 065

REACTIONS (16)
  - ACUTE MYOCARDIAL INFARCTION [None]
  - ADVERSE EVENT [None]
  - BASAL CELL CARCINOMA [None]
  - BRADYCARDIA [None]
  - BUNDLE BRANCH BLOCK RIGHT [None]
  - CARDIAC FAILURE CONGESTIVE [None]
  - CORONARY ARTERY DISEASE [None]
  - COUGH [None]
  - ELECTROCARDIOGRAM ABNORMAL [None]
  - HYPERTENSION [None]
  - HYPOTENSION [None]
  - INJURY [None]
  - LOCALISED INFECTION [None]
  - STAPHYLOCOCCAL INFECTION [None]
  - SYNCOPE [None]
  - URINARY TRACT INFECTION [None]
